FAERS Safety Report 8343754 (Version 3)
Quarter: 2015Q1

REPORT INFORMATION
  Report Type: Spontaneous
  Country: US (occurrence: US)
  Receive Date: 20120119
  Receipt Date: 20150105
  Transmission Date: 20150721
  Serious: Yes (Death, Hospitalization)
  Sender: FDA-Public Use
  Company Number: US-SANOFI-AVENTIS-2012SA002875

PATIENT
  Age: 70 Year
  Sex: Male

DRUGS (8)
  1. PLAVIX [Suspect]
     Active Substance: CLOPIDOGREL BISULFATE
     Indication: STENT PLACEMENT
     Route: 065
     Dates: start: 20031108, end: 20060925
  2. LISINOPRIL. [Concomitant]
     Active Substance: LISINOPRIL
  3. PLAVIX [Suspect]
     Active Substance: CLOPIDOGREL BISULFATE
     Indication: MYOCARDIAL INFARCTION
     Route: 065
     Dates: start: 20031108, end: 20060925
  4. SIMVASTATIN. [Concomitant]
     Active Substance: SIMVASTATIN
  5. LASIX [Concomitant]
     Active Substance: FUROSEMIDE
     Route: 048
  6. GLYBURIDE. [Concomitant]
     Active Substance: GLYBURIDE
     Route: 048
  7. ECOTRIN [Concomitant]
     Active Substance: ASPIRIN
     Route: 048
     Dates: end: 20060927
  8. TOPROL XL [Concomitant]
     Active Substance: METOPROLOL SUCCINATE
     Route: 048

REACTIONS (2)
  - Death [Fatal]
  - Epistaxis [Unknown]

NARRATIVE: CASE EVENT DATE: 20060925
